FAERS Safety Report 8789009 (Version 1)
Quarter: 2012Q4

REPORT INFORMATION
  Report Type: Report from Study
  Country: JP (occurrence: JP)
  Receive Date: 20120917
  Receipt Date: 20120917
  Transmission Date: 20130627
  Serious: Yes (Other)
  Sender: FDA-Public Use
  Company Number: JP-009507513-1209JPN005311

PATIENT

DRUGS (10)
  1. PEGINTRON [Suspect]
     Indication: HEPATITIS C
     Dosage: 1.5 Microgram per kilogram, qw
     Route: 058
     Dates: start: 20120718
  2. REBETOL [Suspect]
     Indication: HEPATITIS C
     Dosage: 600 mg, qd
     Route: 048
     Dates: start: 20120718, end: 20120807
  3. REBETOL [Suspect]
     Dosage: 400 mg, qd
     Route: 048
     Dates: start: 20120808, end: 20120814
  4. REBETOL [Suspect]
     Dosage: 200 mg, qd
     Route: 048
     Dates: start: 20120815
  5. TELAVIC [Suspect]
     Indication: HEPATITIS C
     Dosage: 2250 mg, qd
     Route: 048
     Dates: start: 20120718, end: 20120720
  6. TELAVIC [Suspect]
     Dosage: 1500 mg, qd
     Route: 048
     Dates: start: 20120721
  7. ALOSITOL [Concomitant]
     Indication: HYPERURICAEMIA
     Dosage: 200 mg, qd
     Route: 048
  8. ALLELOCK [Concomitant]
     Indication: PROPHYLAXIS
     Dosage: 10 mg, qd, formulation: POR
     Route: 048
  9. OLMETEC [Concomitant]
     Indication: HYPERTENSION
     Dosage: 40 mg, qd, formulation: POR
     Route: 048
     Dates: start: 20120718
  10. TANATRIL [Concomitant]
     Indication: HYPERTENSION
     Dosage: 5 mg, qd
     Route: 048
     Dates: start: 20120718

REACTIONS (1)
  - Renal disorder [Recovered/Resolved]
